FAERS Safety Report 7047766-2 (Version None)
Quarter: 2010Q4

REPORT INFORMATION
  Report Type: 
  Country: None (occurrence: None)
  Receive Date: 20101015
  Receipt Date: 20101005
  Transmission Date: 20110411
  Serious: Yes (Other)
  Sender: FDA-Public Use
  Company Number: US-PFIZER INC-2010114358

PATIENT
  Sex: Male
  Weight: 133.8 kg

DRUGS (11)
  1. LIPITOR [Suspect]
     Indication: BLOOD CHOLESTEROL INCREASED
     Dosage: 20 MG, DAILY
     Route: 048
     Dates: start: 20090701
  2. GLIPIZIDE [Concomitant]
     Dosage: 5 MG, DAILY
  3. NEXIUM [Concomitant]
     Dosage: 40 MG, DAILY
  4. VICODIN ES [Concomitant]
     Dosage: UNK
  5. LEXAPRO [Concomitant]
     Dosage: 20 MG, UNK
  6. ZESTORETIC [Concomitant]
     Dosage: [LISINOPRIL 20]/[HYDROCHLOROTHIAZIDE 25 MG], DAILY
  7. ACETYLSALICYLIC ACID [Concomitant]
     Dosage: 81 MG, UNK
  8. DESYREL [Concomitant]
     Dosage: 100 MG, UNK
  9. METOPROLOL [Concomitant]
     Dosage: 25 MG, 2X/DAY
  10. AMIODARONE [Concomitant]
     Dosage: 200 MG, 1X/DAY MORNING
  11. WARFARIN [Concomitant]
     Dosage: 5 MG, 1X/DAY AT NIGHT

REACTIONS (5)
  - ATRIAL FLUTTER [None]
  - CORONARY ARTERY OCCLUSION [None]
  - DEPRESSION [None]
  - GASTROOESOPHAGEAL REFLUX DISEASE [None]
  - POST PROCEDURAL COMPLICATION [None]
